FAERS Safety Report 12566180 (Version 2)
Quarter: 2016Q4

REPORT INFORMATION
  Report Type: Spontaneous
  Country: VE (occurrence: VE)
  Receive Date: 20160718
  Receipt Date: 20161019
  Transmission Date: 20170207
  Serious: Yes (Other)
  Sender: FDA-Public Use
  Company Number: VE-GLAXOSMITHKLINE-VE2016GSK101257

PATIENT
  Age: 66 Year
  Sex: Male
  Weight: 65 kg

DRUGS (2)
  1. VENTIDE [Suspect]
     Active Substance: ALBUTEROL SULFATE\BECLOMETHASONE DIPROPIONATE
     Indication: PRODUCT USED FOR UNKNOWN INDICATION
     Dosage: UNK
     Dates: start: 2011
  2. SALBUTAN [Suspect]
     Active Substance: ALBUTEROL SULFATE
     Indication: ASTHMA
     Dosage: UNK
     Route: 048
     Dates: start: 2011

REACTIONS (8)
  - Respiratory distress [Recovering/Resolving]
  - Asthmatic crisis [Unknown]
  - Product supply issue [Unknown]
  - Liver injury [Unknown]
  - Dyspnoea [Unknown]
  - Weight decreased [Unknown]
  - Drug ineffective [Unknown]
  - Hypertension [Unknown]

NARRATIVE: CASE EVENT DATE: 201512
